FAERS Safety Report 8267943 (Version 4)
Quarter: 2013Q2

REPORT INFORMATION
  Report Type: Spontaneous
  Country: US (occurrence: US)
  Receive Date: 20111129
  Receipt Date: 20130411
  Transmission Date: 20140414
  Serious: Yes (Other)
  Sender: FDA-Public Use
  Company Number: US-ASTRAZENECA-2011SE70055

PATIENT
  Age: 67 Year
  Sex: Male

DRUGS (5)
  1. ATACAND [Suspect]
     Route: 048
  2. ATACAND HCT [Suspect]
     Route: 048
  3. NEXIUM [Suspect]
     Route: 048
  4. CRESTOR [Suspect]
     Route: 048
  5. LIPITOR [Suspect]
     Route: 065

REACTIONS (4)
  - Myocardial infarction [Unknown]
  - Coronary artery occlusion [Unknown]
  - Dyspepsia [Unknown]
  - Drug dose omission [Unknown]
